FAERS Safety Report 5080337-6 (Version None)
Quarter: 2006Q3

REPORT INFORMATION
  Report Type: 
  Country: None (occurrence: None)
  Receive Date: 20060809
  Receipt Date: 20060728
  Transmission Date: 20061208
  Serious: Yes (Hospitalization, Other)
  Sender: FDA-Public Use
  Company Number: FRWYE410328JUL06

PATIENT
  Age: 21 Year
  Sex: Female

DRUGS (5)
  1. ADVIL [Suspect]
     Indication: INFECTIOUS MONONUCLEOSIS
     Dosage: ORAL
     Route: 048
     Dates: start: 20060320, end: 20060327
  2. AMOXICILLIN [Suspect]
     Indication: INFECTIOUS MONONUCLEOSIS
     Dosage: ORAL
     Route: 048
     Dates: start: 20060320, end: 20060327
  3. THIOVALONE             (TIXOCORTOL PIVALATE, , 0) [Suspect]
     Indication: INFECTIOUS MONONUCLEOSIS
     Dosage: ORAL
     Route: 048
     Dates: start: 20060320, end: 20060327
  4. ACETAMINOPHEN [Concomitant]
  5. EFFERALGAN CODEINE               (PARACETAMOL/CODEINE PHOSPHATE) [Concomitant]

REACTIONS (5)
  - FACE OEDEMA [None]
  - OEDEMA PERIPHERAL [None]
  - RASH MACULAR [None]
  - SKIN EXFOLIATION [None]
  - TOXIC SKIN ERUPTION [None]
